FAERS Safety Report 10144181 (Version 1)
Quarter: 2014Q2

REPORT INFORMATION
  Report Type: Spontaneous
  Country: CH (occurrence: CH)
  Receive Date: 20140430
  Receipt Date: 20140430
  Transmission Date: 20141212
  Serious: Yes (Congenital Anomaly, Other)
  Sender: FDA-Public Use
  Company Number: CH-PFIZER INC-2014114618

PATIENT
  Sex: Male
  Weight: 1.47 kg

DRUGS (2)
  1. EFEXOR ER [Suspect]
     Indication: DEPRESSION
     Dosage: 375 MG, DAILY
     Route: 064
     Dates: start: 2012
  2. SEROQUEL [Suspect]
     Indication: DEPRESSION
     Dosage: 200 MG, 1X/DAY
     Route: 064
     Dates: start: 20130911

REACTIONS (4)
  - Maternal exposure during pregnancy [Recovered/Resolved]
  - Premature baby [Recovered/Resolved]
  - Premature baby [Recovered/Resolved]
  - Congenital ureteric anomaly [Unknown]
